FAERS Safety Report 10266208 (Version 1)
Quarter: 2014Q2

REPORT INFORMATION
  Report Type: Spontaneous
  Country: US (occurrence: US)
  Receive Date: 20140627
  Receipt Date: 20140627
  Transmission Date: 20141212
  Serious: Yes (Hospitalization)
  Sender: FDA-Public Use
  Company Number: US-B.I. PHARMACEUTICALS,INC./RIDGEFIELD-2014-BI-28638BP

PATIENT
  Age: 64 Year
  Sex: Female
  Weight: 64 kg

DRUGS (1)
  1. MICARDIS HCT TABLETS [Suspect]
     Indication: HYPERTENSION
     Dosage: DOSE PER APPLICATION: 80 MG / 12.5 MG; DAILY DOSE: 80 MG/12.5 MG
     Route: 048
     Dates: start: 2002

REACTIONS (9)
  - Heart rate irregular [Recovered/Resolved]
  - Abdominal pain lower [Recovered/Resolved]
  - Diverticulitis [Recovered/Resolved]
  - Blood potassium decreased [Not Recovered/Not Resolved]
  - Back pain [Not Recovered/Not Resolved]
  - Dizziness [Not Recovered/Not Resolved]
  - Headache [Not Recovered/Not Resolved]
  - Hypotension [Not Recovered/Not Resolved]
  - Hypertension [Not Recovered/Not Resolved]
